FAERS Safety Report 10673973 (Version 1)
Quarter: 2014Q4

REPORT INFORMATION
  Report Type: Spontaneous
  Country: CA (occurrence: CA)
  Receive Date: 20141224
  Receipt Date: 20141224
  Transmission Date: 20150529
  Serious: Yes (Life-Threatening, Hospitalization)
  Sender: FDA-Public Use
  Company Number: CA-ROCHE-1512378

PATIENT
  Age: 50 Year
  Sex: Female
  Weight: 55 kg

DRUGS (13)
  1. EURO-K [Concomitant]
  2. LASIX [Concomitant]
     Active Substance: FUROSEMIDE
  3. PAXIL (CANADA) [Concomitant]
     Route: 065
  4. DEXILANT [Concomitant]
     Active Substance: DEXLANSOPRAZOLE
     Route: 065
  5. IMODIUM [Concomitant]
     Active Substance: LOPERAMIDE HYDROCHLORIDE
  6. SERAX (CANADA) [Concomitant]
     Route: 065
  7. TAXOTERE [Concomitant]
     Active Substance: DOCETAXEL
     Route: 042
  8. HERCEPTIN [Suspect]
     Active Substance: TRASTUZUMAB
     Indication: BREAST CANCER
     Dosage: THERAPY DURATION: 64 DAYS?VIALS; POWDER FOR SOLUTION INTRAVENOUS
     Route: 042
  9. BENADRYL [Concomitant]
     Active Substance: DIPHENHYDRAMINE HYDROCHLORIDE
  10. DEXAMETHASONE. [Concomitant]
     Active Substance: DEXAMETHASONE
  11. NEUPOGEN [Concomitant]
     Active Substance: FILGRASTIM
     Route: 042
  12. STEMETIL [Concomitant]
     Active Substance: PROCHLORPERAZINE MALEATE
  13. FRAGMIN [Concomitant]
     Active Substance: DALTEPARIN SODIUM
     Route: 042

REACTIONS (2)
  - Deep vein thrombosis [Recovered/Resolved]
  - Pulmonary embolism [Recovered/Resolved]
